FAERS Safety Report 6527351-9 (Version None)
Quarter: 2010Q1

REPORT INFORMATION
  Report Type: 
  Country: None (occurrence: None)
  Receive Date: 20100105
  Receipt Date: 20091231
  Transmission Date: 20100710
  Serious: Yes (Death, Hospitalization)
  Sender: FDA-Public Use
  Company Number: US-MERCK-0911USA01516

PATIENT
  Age: 77 Year
  Sex: Male
  Weight: 70 kg

DRUGS (33)
  1. ZOLINZA [Suspect]
     Indication: MYCOSIS FUNGOIDES
     Route: 048
     Dates: start: 20090915, end: 20090929
  2. ZOLINZA [Suspect]
     Route: 048
     Dates: start: 20090930, end: 20090930
  3. ZOLINZA [Suspect]
     Route: 048
     Dates: start: 20091001, end: 20091001
  4. ZOLINZA [Suspect]
     Route: 048
     Dates: start: 20091002, end: 20091002
  5. ZOLINZA [Suspect]
     Route: 048
     Dates: start: 20091003, end: 20091005
  6. ZOLINZA [Suspect]
     Indication: T-CELL LYMPHOMA STAGE IV
     Route: 048
     Dates: start: 20090915, end: 20090929
  7. ZOLINZA [Suspect]
     Route: 048
     Dates: start: 20090930, end: 20090930
  8. ZOLINZA [Suspect]
     Route: 048
     Dates: start: 20091001, end: 20091001
  9. ZOLINZA [Suspect]
     Route: 048
     Dates: start: 20091002, end: 20091002
  10. ZOLINZA [Suspect]
     Route: 048
     Dates: start: 20091003, end: 20091005
  11. AUGMENTIN [Concomitant]
     Route: 065
     Dates: end: 20090929
  12. DARVOCET-N 100 [Concomitant]
     Route: 065
  13. AMOXICILLIN [Concomitant]
     Route: 065
     Dates: end: 20090929
  14. NEUPOGEN [Concomitant]
     Route: 065
  15. PROCHLORPERAZINE MALEATE [Concomitant]
     Route: 065
  16. DARBEPOETIN ALFA [Concomitant]
     Route: 065
  17. PREDNISONE [Concomitant]
     Route: 065
  18. RENAGEL [Concomitant]
     Route: 065
  19. ALLOPURINOL [Concomitant]
     Route: 065
  20. ISOSORBIDE DINITRATE [Concomitant]
     Route: 065
  21. METOPROLOL TARTRATE [Concomitant]
     Route: 065
  22. POTASSIUM (UNSPECIFIED) [Concomitant]
     Route: 065
  23. FUROSEMIDE [Concomitant]
     Route: 065
  24. ACTOS [Concomitant]
     Route: 065
  25. NORVASC [Concomitant]
     Route: 065
  26. NEXIUM [Concomitant]
     Route: 065
  27. FLOMAX [Concomitant]
     Route: 065
  28. TOPROL-XL [Concomitant]
     Route: 065
  29. LESCOL [Concomitant]
     Route: 065
  30. METFORMIN HYDROCHLORIDE [Concomitant]
     Route: 065
  31. GLYBURIDE [Concomitant]
     Route: 065
  32. PROBENECID [Concomitant]
     Route: 065
  33. LISINOPRIL [Concomitant]
     Route: 048

REACTIONS (17)
  - ACUTE PULMONARY OEDEMA [None]
  - BLOOD GLUCOSE INCREASED [None]
  - BLOOD PH DECREASED [None]
  - BLOOD PRESSURE DECREASED [None]
  - BUNDLE BRANCH BLOCK LEFT [None]
  - CARDIAC ARREST [None]
  - CARDIAC FAILURE CONGESTIVE [None]
  - DIARRHOEA [None]
  - GENERAL PHYSICAL HEALTH DETERIORATION [None]
  - HYPERTENSION [None]
  - MULTI-ORGAN DISORDER [None]
  - MYCOSIS FUNGOIDES [None]
  - MYOCARDIAL INFARCTION [None]
  - PNEUMONIA [None]
  - PYREXIA [None]
  - RENAL FAILURE ACUTE [None]
  - RESPIRATORY FAILURE [None]
